FAERS Safety Report 10015716 (Version 1)
Quarter: 2014Q1

REPORT INFORMATION
  Report Type: Spontaneous
  Country: US (occurrence: US)
  Receive Date: 20140317
  Receipt Date: 20140317
  Transmission Date: 20141002
  Serious: No
  Sender: FDA-Public Use
  Company Number: US-PFIZER INC-2014076329

PATIENT
  Age: 35 Year
  Sex: Female
  Weight: 113.38 kg

DRUGS (2)
  1. EFFEXOR XR [Suspect]
     Indication: DEPRESSION
     Dosage: 150 MG, UNK
     Dates: end: 2013
  2. EFFEXOR XR [Suspect]
     Dosage: 450 MG, DAILY
     Dates: start: 2013, end: 2014

REACTIONS (2)
  - Intentional drug misuse [Unknown]
  - Dizziness [Unknown]
